FAERS Safety Report 7672016-3 (Version None)
Quarter: 2011Q3

REPORT INFORMATION
  Report Type: 
  Country: None (occurrence: None)
  Receive Date: 20110809
  Receipt Date: 20110804
  Transmission Date: 20111222
  Serious: Yes (Death)
  Sender: FDA-Public Use
  Company Number: IN-GLAXOSMITHKLINE-Z0010227B

PATIENT
  Sex: Male
  Weight: 58 kg

DRUGS (10)
  1. LACTULOSE [Concomitant]
     Indication: HEPATIC ENCEPHALOPATHY
     Dosage: 30ML PER DAY
     Route: 048
     Dates: start: 20110627
  2. MULTI-VITAMIN [Concomitant]
     Indication: HEPATIC ENCEPHALOPATHY
     Dosage: 10ML FOUR TIMES PER DAY
     Route: 042
     Dates: start: 20110627, end: 20110707
  3. ISOLYTE [Concomitant]
     Indication: HEPATIC ENCEPHALOPATHY
     Dosage: 500ML FOUR TIMES PER DAY
     Route: 042
     Dates: start: 20110627, end: 20110707
  4. PANTOPRAZOLE [Concomitant]
     Indication: ANTACID THERAPY
     Dosage: 40MG PER DAY
     Route: 048
     Dates: start: 20110707
  5. CYCLOPHOSPHAMIDE [Suspect]
     Indication: CHRONIC LYMPHOCYTIC LEUKAEMIA
     Route: 042
     Dates: start: 20101223
  6. VITAMIN K TAB [Concomitant]
     Indication: HEPATIC ENCEPHALOPATHY
     Dosage: 10MG PER DAY
     Route: 030
     Dates: start: 20110627, end: 20110707
  7. MECOBALAMIN [Concomitant]
     Indication: HEPATIC ENCEPHALOPATHY
     Dosage: 1TAB PER DAY
     Route: 048
     Dates: start: 20110707
  8. OFATUMUMAB [Suspect]
     Indication: CHRONIC LYMPHOCYTIC LEUKAEMIA
     Route: 042
     Dates: start: 20101223
  9. FLUDARABINE PHOSPHATE [Suspect]
     Indication: CHRONIC LYMPHOCYTIC LEUKAEMIA
     Route: 042
     Dates: start: 20101223
  10. EVION [Concomitant]
     Indication: HEPATIC ENCEPHALOPATHY
     Dosage: 1TAB PER DAY
     Route: 048
     Dates: start: 20110707

REACTIONS (1)
  - HEPATIC ENCEPHALOPATHY [None]
